FAERS Safety Report 9604636 (Version 1)
Quarter: 2013Q4

REPORT INFORMATION
  Report Type: Spontaneous
  Country: FR (occurrence: FR)
  Receive Date: 20131008
  Receipt Date: 20131008
  Transmission Date: 20140711
  Serious: Yes (Other)
  Sender: FDA-Public Use
  Company Number: FR-MALLINCKRODT-T201304525

PATIENT
  Age: 52 Year
  Sex: Female

DRUGS (1)
  1. OPTIJECT 350 [Suspect]
     Indication: ABDOMEN SCAN
     Dosage: 125 ML, SINGLE
     Route: 065
     Dates: start: 20130919, end: 20130919

REACTIONS (5)
  - Loss of consciousness [Recovered/Resolved]
  - Presyncope [Recovered/Resolved]
  - Pain [Recovered/Resolved]
  - Rash [Recovered/Resolved]
  - Retching [Recovered/Resolved]
